FAERS Safety Report 12877686 (Version 1)
Quarter: 2016Q4

REPORT INFORMATION
  Report Type: Spontaneous
  Country: US (occurrence: US)
  Receive Date: 20161024
  Receipt Date: 20161024
  Transmission Date: 20170207
  Serious: No
  Sender: FDA-Public Use
  Company Number: US-PFIZER INC-2016490269

PATIENT
  Age: 70 Year
  Sex: Male

DRUGS (1)
  1. TESTOSTERONE CIPIONATE [Suspect]
     Active Substance: TESTOSTERONE
     Indication: BLOOD TESTOSTERONE DECREASED
     Dosage: UNK

REACTIONS (5)
  - Hepatic enzyme increased [Unknown]
  - Blood testosterone increased [Unknown]
  - Blood pressure increased [Recovered/Resolved]
  - Blood potassium increased [Unknown]
  - Yellow skin [Recovered/Resolved]
